FAERS Safety Report 8822444 (Version 2)
Quarter: 2012Q4

REPORT INFORMATION
  Report Type: 
  Country: US (occurrence: US)
  Receive Date: 20121003
  Receipt Date: 20121012
  Transmission Date: 20130627
  Serious: Yes (Other)
  Sender: FDA-Public Use
  Company Number: US-ELI_LILLY_AND_COMPANY-US201209007858

PATIENT
  Sex: Female

DRUGS (2)
  1. HUMALOG LISPRO [Suspect]
     Indication: TYPE 2 DIABETES MELLITUS
     Dosage: 7 u, prn
  2. LANTUS [Concomitant]

REACTIONS (15)
  - Cardiac failure congestive [Unknown]
  - Brain injury [Unknown]
  - Arteriosclerosis coronary artery [Unknown]
  - Encephalopathy [Unknown]
  - Nephrosclerosis [Unknown]
  - Diabetic eye disease [Unknown]
  - Polyneuropathy [Unknown]
  - Anxiety [Unknown]
  - Insomnia [Unknown]
  - Hypertension [Unknown]
  - Malnutrition [Unknown]
  - Diabetic neuropathy [Unknown]
  - Depression [Unknown]
  - Gastrooesophageal reflux disease [Unknown]
  - Constipation [Unknown]
